FAERS Safety Report 24857588 (Version 1)
Quarter: 2025Q1

REPORT INFORMATION
  Report Type: Spontaneous
  Country: US (occurrence: None)
  Receive Date: 20250117
  Receipt Date: 20250117
  Transmission Date: 20250408
  Serious: Yes (Life-Threatening, Hospitalization, Disabling)
  Sender: FDA-CTU
  Company Number: None

PATIENT
  Age: 80 Year
  Sex: Female
  Weight: 74 kg

DRUGS (1)
  1. APIXABAN [Suspect]
     Active Substance: APIXABAN
     Indication: Atrial fibrillation
     Dosage: FREQUENCY : TWICE A DAY;?
     Route: 048
     Dates: start: 20231128, end: 20241117

REACTIONS (10)
  - Dizziness [None]
  - Vision blurred [None]
  - Dysarthria [None]
  - Circulatory collapse [None]
  - Vomiting [None]
  - Cerebral haematoma [None]
  - Hypertensive emergency [None]
  - Encephalopathy [None]
  - Cerebellar haemorrhage [None]
  - Pneumocephalus [None]

NARRATIVE: CASE EVENT DATE: 20241117
